FAERS Safety Report 15371039 (Version 2)
Quarter: 2018Q4

REPORT INFORMATION
  Report Type: Spontaneous
  Country: JP (occurrence: JP)
  Receive Date: 20180911
  Receipt Date: 20181115
  Transmission Date: 20190204
  Serious: Yes (Other)
  Sender: FDA-Public Use
  Company Number: JP-GLAXOSMITHKLINE-JP2018JPN160240

PATIENT
  Age: 48 Year
  Sex: Male

DRUGS (9)
  1. LOXONIN [Concomitant]
     Active Substance: LOXOPROFEN SODIUM
     Dosage: UNK
  2. BELSOMRA [Concomitant]
     Active Substance: SUVOREXANT
     Dosage: 20 MG, 1D
  3. ACINON [Concomitant]
     Active Substance: NIZATIDINE
     Dosage: 150 MG, 1D
  4. LAMICTAL [Suspect]
     Active Substance: LAMOTRIGINE
     Dosage: 25 MG, QD
     Route: 048
     Dates: start: 20180718, end: 20180913
  5. DEPAKENE [Concomitant]
     Active Substance: VALPROIC ACID
     Dosage: 200 MG, 1D
  6. HALCION [Concomitant]
     Active Substance: TRIAZOLAM
     Dosage: 0.25 MG, 1D
  7. SAIREITO [Concomitant]
     Active Substance: HERBALS
     Dosage: UNK
  8. URIEF [Concomitant]
     Active Substance: SILODOSIN
     Dosage: 4 MG, 1D
  9. EFFEXOR [Concomitant]
     Active Substance: VENLAFAXINE HYDROCHLORIDE
     Dosage: 75 MG, 1D

REACTIONS (2)
  - Urinary retention [Recovered/Resolved with Sequelae]
  - Inappropriate schedule of product administration [Unknown]

NARRATIVE: CASE EVENT DATE: 2018
